FAERS Safety Report 10986418 (Version 1)
Quarter: 2015Q2

REPORT INFORMATION
  Report Type: Spontaneous
  Country: IT (occurrence: None)
  Receive Date: 20150402
  Receipt Date: 20150402
  Transmission Date: 20150821
  Serious: Yes (Life-Threatening)
  Sender: FDA-Public Use
  Company Number: FK201501564

PATIENT
  Age: 54 Year
  Sex: Female

DRUGS (1)
  1. PROPOFOL. [Suspect]
     Active Substance: PROPOFOL
     Indication: SEDATION
     Dosage: 180 ML, 1 IN 1 D, INTRAVENOUS (NOT OTHERWISE SPECIFIED)
     Route: 042
     Dates: start: 20150324, end: 20150324

REACTIONS (3)
  - Lactic acidosis [None]
  - Shock [None]
  - Rhabdomyolysis [None]

NARRATIVE: CASE EVENT DATE: 20150324
